FAERS Safety Report 14564325 (Version 3)
Quarter: 2018Q2

REPORT INFORMATION
  Report Type: Report from Study
  Country: US (occurrence: US)
  Receive Date: 20180222
  Receipt Date: 20180427
  Transmission Date: 20180711
  Serious: Yes (Hospitalization)
  Sender: FDA-Public Use
  Company Number: US-ACTELION-A-NJ2018-167933

PATIENT
  Age: 67 Year
  Sex: Male

DRUGS (18)
  1. OXYGEN. [Concomitant]
     Active Substance: OXYGEN
  2. AMIODARONE [Concomitant]
     Active Substance: AMIODARONE
  3. VENTOLIN HFA [Concomitant]
     Active Substance: ALBUTEROL SULFATE
  4. OPSUMIT [Suspect]
     Active Substance: MACITENTAN
     Indication: PULMONARY ARTERIAL HYPERTENSION
     Dosage: 10 MG, QD
     Route: 048
     Dates: start: 20160812
  5. TRAZODONE [Concomitant]
     Active Substance: TRAZODONE HYDROCHLORIDE
  6. FAMOTIDINE. [Concomitant]
     Active Substance: FAMOTIDINE
  7. LIPITOR [Concomitant]
     Active Substance: ATORVASTATIN CALCIUM
  8. GABAPENTIN. [Concomitant]
     Active Substance: GABAPENTIN
  9. TYVASO [Concomitant]
     Active Substance: TREPROSTINIL
  10. KLOR-CON [Concomitant]
     Active Substance: POTASSIUM CHLORIDE
  11. ALLOPURINOL. [Concomitant]
     Active Substance: ALLOPURINOL
  12. SILDENAFIL. [Concomitant]
     Active Substance: SILDENAFIL
  13. PRADAXA [Concomitant]
     Active Substance: DABIGATRAN ETEXILATE MESYLATE
     Indication: ATRIAL FIBRILLATION
  14. ELIQUIS [Concomitant]
     Active Substance: APIXABAN
  15. ALBUTEROL. [Concomitant]
     Active Substance: ALBUTEROL
  16. ASPIRIN. [Concomitant]
     Active Substance: ASPIRIN
  17. NORCO [Concomitant]
     Active Substance: ACETAMINOPHEN\HYDROCODONE BITARTRATE
  18. DEMADEX [Concomitant]
     Active Substance: TORSEMIDE

REACTIONS (17)
  - Chronic obstructive pulmonary disease [Unknown]
  - Bronchitis viral [Unknown]
  - Left ventricular end-diastolic pressure increased [Unknown]
  - Fall [Unknown]
  - Incisional drainage [Unknown]
  - Bradycardia [Unknown]
  - Atrial flutter [Unknown]
  - Purulent discharge [Unknown]
  - Hypotension [Unknown]
  - Cellulitis [Unknown]
  - Scab [Unknown]
  - Right ventricular systolic pressure increased [Unknown]
  - Pain in extremity [Unknown]
  - Erythema [Unknown]
  - Arthritis bacterial [Unknown]
  - Dizziness [Unknown]
  - Peripheral swelling [Unknown]

NARRATIVE: CASE EVENT DATE: 20180127
